FAERS Safety Report 16976647 (Version 1)
Quarter: 2019Q4

REPORT INFORMATION
  Report Type: Spontaneous
  Country: IN (occurrence: IN)
  Receive Date: 20191030
  Receipt Date: 20191030
  Transmission Date: 20200122
  Serious: Yes (Other)
  Sender: FDA-Public Use
  Company Number: IN-ANIPHARMA-2019-IN-000064

PATIENT
  Sex: 0

DRUGS (3)
  1. DICLOFENAC [Concomitant]
     Active Substance: DICLOFENAC
  2. CIMETIDINE HYDROCHLORIDE (NON-SPECIFIC) [Suspect]
     Active Substance: CIMETIDINE HYDROCHLORIDE
     Indication: HYPERCHLORHYDRIA
  3. METFORMIN [Suspect]
     Active Substance: METFORMIN HYDROCHLORIDE
     Indication: DIABETES MELLITUS

REACTIONS (2)
  - Lactic acidosis [Unknown]
  - Drug interaction [Unknown]
